FAERS Safety Report 24085439 (Version 5)
Quarter: 2024Q4

REPORT INFORMATION
  Report Type: Spontaneous
  Country: US (occurrence: US)
  Receive Date: 20240712
  Receipt Date: 20241025
  Transmission Date: 20250115
  Serious: No
  Sender: NOVARTIS
  Company Number: US-002147023-NVSC2024US144182

PATIENT
  Sex: Female

DRUGS (1)
  1. TAFINLAR [Suspect]
     Active Substance: DABRAFENIB MESYLATE
     Indication: Thyroid cancer
     Dosage: 150 MG, QD
     Route: 048
     Dates: start: 202405

REACTIONS (9)
  - Blister [Unknown]
  - Rash [Unknown]
  - Photosensitivity reaction [Unknown]
  - Palmar-plantar erythrodysaesthesia syndrome [Unknown]
  - Thyroid function test abnormal [Unknown]
  - Fatigue [Unknown]
  - Somnolence [Unknown]
  - Dyschromatopsia [Unknown]
  - Periorbital swelling [Unknown]
